FAERS Safety Report 8970308 (Version 1)
Quarter: 2012Q4

REPORT INFORMATION
  Report Type: 
  Country: US (occurrence: US)
  Receive Date: 20121217
  Receipt Date: 20121217
  Transmission Date: 20130627
  Serious: No
  Sender: FDA-Public Use
  Company Number: US-009507513-1212USA001062

PATIENT
  Age: 2 Year
  Sex: Female
  Weight: 16.78 kg

DRUGS (4)
  1. CLARITIN ORAL SOLUTION [Suspect]
     Indication: NASOPHARYNGITIS
     Dosage: 5 mg, tid
     Route: 048
     Dates: start: 20121015
  2. CLARITIN ORAL SOLUTION [Suspect]
     Indication: RHINORRHOEA
     Dosage: 5 mg, bid
     Route: 048
     Dates: start: 20121016
  3. CLARITIN ORAL SOLUTION [Suspect]
     Dosage: 5 mg, qd
     Route: 048
     Dates: start: 20121017
  4. CLARITIN ORAL SOLUTION [Suspect]
     Dosage: UNK UNK, Once
     Route: 048
     Dates: start: 20121018

REACTIONS (5)
  - Overdose [Recovering/Resolving]
  - Inappropriate schedule of drug administration [Recovering/Resolving]
  - Drug ineffective [Recovering/Resolving]
  - Accidental exposure to product by child [Recovering/Resolving]
  - No adverse event [Unknown]
